FAERS Safety Report 9920757 (Version 2)
Quarter: 2014Q1

REPORT INFORMATION
  Report Type: Report from Study
  Country: KR (occurrence: KR)
  Receive Date: 20140224
  Receipt Date: 20140224
  Transmission Date: 20141002
  Serious: Yes (Hospitalization)
  Sender: FDA-Public Use
  Company Number: KR-B.I. PHARMACEUTICALS,INC./RIDGEFIELD-2013-BI-41536BI

PATIENT
  Age: 73 Year
  Sex: Male

DRUGS (9)
  1. BIBW 2992 [Suspect]
     Indication: SQUAMOUS CELL CARCINOMA OF LUNG
     Dosage: 40 MG
     Route: 048
     Dates: start: 20131112, end: 20131210
  2. BIBW 2992 [Suspect]
     Dosage: 30 MG
     Route: 048
     Dates: start: 20131224
  3. DIABEX 250 MG [Concomitant]
     Indication: DIABETES MELLITUS
     Dosage: 500 MG
     Route: 048
     Dates: start: 20130206
  4. GALVUS 50 MG [Concomitant]
     Indication: DIABETES MELLITUS
     Dosage: 100 MG
     Route: 048
     Dates: start: 20130206
  5. MEGEROL [Concomitant]
     Indication: DECREASED APPETITE
     Dosage: 20 ML
     Route: 048
     Dates: start: 20131106
  6. AXID [Concomitant]
     Indication: GASTRITIS PROPHYLAXIS
     Dosage: 300 MG
     Route: 048
     Dates: start: 20130702
  7. ULTRACET [Concomitant]
     Indication: PAIN
     Dosage: 2 ANZ
     Route: 048
     Dates: start: 20130613
  8. TARGIN 5/2.5 MG [Concomitant]
     Indication: PAIN
     Dosage: 2 ANZ
     Route: 048
     Dates: start: 20131106
  9. IR CODON [Concomitant]
     Indication: PAIN
     Dosage: PRN
     Route: 048
     Dates: start: 20130425

REACTIONS (4)
  - Asthenia [Not Recovered/Not Resolved]
  - Decreased appetite [Not Recovered/Not Resolved]
  - Pneumonia [Recovered/Resolved]
  - Pleural effusion [Recovered/Resolved]
